FAERS Safety Report 8235038-X (Version None)
Quarter: 2012Q1

REPORT INFORMATION
  Report Type: 
  Country: None (occurrence: None)
  Receive Date: 20120326
  Receipt Date: 20120321
  Transmission Date: 20120608
  Serious: Yes (Congenital Anomaly)
  Sender: FDA-Public Use
  Company Number: US-GLAXOSMITHKLINE-A0950437A

PATIENT
  Sex: Male

DRUGS (1)
  1. PAXIL [Suspect]
     Indication: DEPRESSION
     Dosage: 20MG UNKNOWN
     Route: 064

REACTIONS (7)
  - FOETAL EXPOSURE DURING PREGNANCY [None]
  - CEREBELLAR HYPOPLASIA [None]
  - MENTAL RETARDATION [None]
  - AUTISM [None]
  - CONVULSION [None]
  - DANDY-WALKER SYNDROME [None]
  - PERIVENTRICULAR NODULAR HETEROTOPIA [None]
